FAERS Safety Report 15854506 (Version 1)
Quarter: 2019Q1

REPORT INFORMATION
  Report Type: Spontaneous
  Country: US (occurrence: US)
  Receive Date: 20190122
  Receipt Date: 20190122
  Transmission Date: 20190417
  Serious: Yes (Life-Threatening, Hospitalization, Disabling)
  Sender: FDA-Public Use
  Company Number: None

PATIENT
  Age: 94 Year
  Sex: Female
  Weight: 53 kg

DRUGS (2)
  1. ASPIRIN. [Concomitant]
     Active Substance: ASPIRIN
  2. RIVAROXABAN [Suspect]
     Active Substance: RIVAROXABAN
     Indication: ATRIAL FIBRILLATION
     Route: 048

REACTIONS (3)
  - Basal ganglia haemorrhage [None]
  - Product dose omission [None]
  - Brain oedema [None]

NARRATIVE: CASE EVENT DATE: 20190114
